FAERS Safety Report 5107988-4 (Version None)
Quarter: 2006Q3

REPORT INFORMATION
  Report Type: 
  Country: None (occurrence: None)
  Receive Date: 20060914
  Receipt Date: 20060831
  Transmission Date: 20061208
  Serious: Yes (Hospitalization)
  Sender: FDA-Public Use
  Company Number: 2005BI014537

PATIENT
  Age: 48 Year
  Sex: Female
  Weight: 63.9572 kg

DRUGS (3)
  1. AVONEX [Suspect]
     Indication: MULTIPLE SCLEROSIS
     Dosage: 30 UG;QW;IM
     Route: 030
     Dates: start: 20000115, end: 20030101
  2. AVONEX [Suspect]
     Indication: MULTIPLE SCLEROSIS
     Dosage: 30 UG;QW;IM
     Route: 030
     Dates: start: 20030101, end: 20060401
  3. WELLBUTRIN [Concomitant]

REACTIONS (6)
  - FALL [None]
  - HAEMATOMA [None]
  - HEMIPARESIS [None]
  - HIP FRACTURE [None]
  - THROMBOSIS [None]
  - URINARY TRACT INFECTION [None]
